FAERS Safety Report 4323265-3 (Version None)
Quarter: 2004Q1

REPORT INFORMATION
  Report Type: 
  Country: None (occurrence: None)
  Receive Date: 20040323
  Receipt Date: 20040323
  Transmission Date: 20041129
  Serious: Yes (Other)
  Sender: FDA-Public Use
  Company Number: None

PATIENT
  Age: 70 Year
  Sex: Male
  Weight: 93 kg

DRUGS (6)
  1. ALPHAGAN [Suspect]
     Indication: GLAUCOMA
     Dosage: 1 DROP , BID , BOTH EYE
     Route: 047
     Dates: start: 20030702, end: 20041003
  2. GLYBURIDE [Concomitant]
  3. DORZOLAMIDE 2/TIMOLOL [Concomitant]
  4. LATANOPROST [Concomitant]
  5. METFORMIN HCL [Concomitant]
  6. LISINOPRIL [Concomitant]

REACTIONS (1)
  - RASH [None]
